FAERS Safety Report 25976815 (Version 1)
Quarter: 2025Q4

REPORT INFORMATION
  Report Type: Report from Study
  Country: US (occurrence: US)
  Receive Date: 20251029
  Receipt Date: 20251029
  Transmission Date: 20260118
  Serious: Yes (Other)
  Sender: ABBVIE
  Company Number: US-ABBVIE-6520908

PATIENT
  Sex: Male

DRUGS (1)
  1. SKYRIZI [Suspect]
     Active Substance: RISANKIZUMAB-RZAA
     Indication: Psoriasis
     Route: 058
     Dates: start: 20200422

REACTIONS (3)
  - Aortic aneurysm [Not Recovered/Not Resolved]
  - Blister [Not Recovered/Not Resolved]
  - Purulent discharge [Not Recovered/Not Resolved]
